FAERS Safety Report 5826205-0 (Version None)
Quarter: 2008Q3

REPORT INFORMATION
  Report Type: 
  Country: None (occurrence: None)
  Receive Date: 20080723
  Receipt Date: 20080704
  Transmission Date: 20090109
  Serious: Yes (Other)
  Sender: FDA-Public Use
  Company Number: 2008PV000055

PATIENT
  Age: 15 Year
  Sex: Male

DRUGS (4)
  1. DEPOCYT [Suspect]
     Indication: LEUKAEMIA
     Dosage: 50 MG; Q6W; INTH
     Route: 055
     Dates: start: 20060501, end: 20070925
  2. DEPOCYT [Suspect]
     Indication: NERVOUS SYSTEM DISORDER
     Dosage: 50 MG; Q6W; INTH
     Route: 055
     Dates: start: 20060501, end: 20070925
  3. SULFAMETHOXAZOLE AND TRIMETHOPRIM [Concomitant]
  4. METHOTREXATE [Concomitant]

REACTIONS (13)
  - ACUTE LYMPHOCYTIC LEUKAEMIA [None]
  - CAUDA EQUINA SYNDROME [None]
  - CLOSTRIDIUM DIFFICILE TOXIN TEST POSITIVE [None]
  - ENCOPRESIS [None]
  - GAIT DISTURBANCE [None]
  - HYPOAESTHESIA [None]
  - LEUKAEMIA RECURRENT [None]
  - NERVOUS SYSTEM DISORDER [None]
  - NEUROTOXICITY [None]
  - NEUTROPENIC COLITIS [None]
  - PARESIS ANAL SPHINCTER [None]
  - POLYNEUROPATHY [None]
  - URINARY RETENTION [None]
